FAERS Safety Report 18364418 (Version 1)
Quarter: 2020Q4

REPORT INFORMATION
  Report Type: Spontaneous
  Country: FR (occurrence: FR)
  Receive Date: 20201009
  Receipt Date: 20201009
  Transmission Date: 20210114
  Serious: Yes (Other)
  Sender: FDA-Public Use
  Company Number: FR-PFIZER INC-2020383669

PATIENT
  Age: 75 Year
  Sex: Male

DRUGS (6)
  1. PEGFILGRASTIM [Suspect]
     Active Substance: PEGFILGRASTIM
     Dosage: 6 MG (AFTER RECEIVING ANOTHER PEGYLATED)
     Dates: start: 200702
  2. CYTOSINE ARABINOSIDE [Suspect]
     Active Substance: CYTARABINE
     Indication: ACUTE MYELOID LEUKAEMIA
     Dosage: 200 MG/M2, DAILY ((200 MG/M2/DAY) CONTINUOUSLY FOR 7 DAYS)
     Dates: start: 200611
  3. IDARUBICIN HCL [Suspect]
     Active Substance: IDARUBICIN HYDROCHLORIDE
     Indication: ACUTE MYELOID LEUKAEMIA
     Dosage: 9 MG/M2, DAILY [(9 MG/M2/DAY) FOR 4 DAYS]
     Route: 042
     Dates: start: 200611
  4. IDARUBICIN HCL [Suspect]
     Active Substance: IDARUBICIN HYDROCHLORIDE
     Dosage: 9 MG/M2, DAILY [(9 MG/M2/DAY) FOR 4 DAYS]
     Route: 042
     Dates: start: 200702
  5. PEGFILGRASTIM [Suspect]
     Active Substance: PEGFILGRASTIM
     Indication: ACUTE MYELOID LEUKAEMIA
     Dosage: 6 MG, SINGLE (SINGLE INJECTION)
     Dates: start: 200611
  6. CYTOSINE ARABINOSIDE [Suspect]
     Active Substance: CYTARABINE
     Dosage: 100 MG/M2 (SUBCUTANEOUSLY)
     Route: 058
     Dates: start: 200702

REACTIONS (2)
  - Pulmonary mass [Unknown]
  - Pyrexia [Unknown]
